FAERS Safety Report 6687110-3 (Version None)
Quarter: 2010Q2

REPORT INFORMATION
  Report Type: 
  Country: None (occurrence: None)
  Receive Date: 20100414
  Receipt Date: 20100406
  Transmission Date: 20101027
  Serious: Yes (Death)
  Sender: FDA-Public Use
  Company Number: 2010SP001082

PATIENT
  Age: 85 Year
  Sex: Male

DRUGS (11)
  1. ALVESCO [Suspect]
     Indication: ASTHMA
     Dosage: 400 UG;BID;INHALATION
     Route: 055
     Dates: start: 20081217, end: 20090702
  2. ALVESCO [Suspect]
     Indication: CHRONIC OBSTRUCTIVE PULMONARY DISEASE
     Dosage: 400 UG;BID;INHALATION
     Route: 055
     Dates: start: 20081217, end: 20090702
  3. THEO-DUR [Concomitant]
  4. SPIRIVA [Concomitant]
  5. MUCOSIL-10 [Concomitant]
  6. MAINTATE [Concomitant]
  7. RIZE /00624801/ [Concomitant]
  8. HOCHUUEKKITOU [Concomitant]
  9. HALCION [Concomitant]
  10. LASIX [Concomitant]
  11. BUDESONIDE [Concomitant]

REACTIONS (1)
  - BILE DUCT CANCER [None]
